FAERS Safety Report 4550113-9 (Version None)
Quarter: 2005Q1

REPORT INFORMATION
  Report Type: 
  Country: None (occurrence: None)
  Receive Date: 20050110
  Receipt Date: 20041228
  Transmission Date: 20050727
  Serious: Yes (Death)
  Sender: FDA-Public Use
  Company Number: 2004-DE-06344GD

PATIENT
  Age: 19 Year
  Sex: Male

DRUGS (1)
  1. MEXILETINE HCL [Suspect]

REACTIONS (2)
  - SUDDEN DEATH [None]
  - VENTRICULAR FIBRILLATION [None]
